FAERS Safety Report 8501842-3 (Version None)
Quarter: 2012Q3

REPORT INFORMATION
  Report Type: 
  Country: None (occurrence: None)
  Receive Date: 20120702
  Receipt Date: 20120621
  Transmission Date: 20120928
  Serious: Yes (Hospitalization)
  Sender: FDA-Public Use
  Company Number: DKLU1082273

PATIENT
  Age: 44 Year
  Sex: Female

DRUGS (1)
  1. SABRIL [Suspect]
     Indication: COMPLEX PARTIAL SEIZURES
     Dosage: 1 DF DOSAGE FORM, 1 IN 1 D, ORAL
     Route: 048
     Dates: start: 20120405

REACTIONS (3)
  - CONDITION AGGRAVATED [None]
  - CONVULSION [None]
  - CENTRAL NERVOUS SYSTEM LESION [None]
